FAERS Safety Report 23732419 (Version 2)
Quarter: 2024Q2

REPORT INFORMATION
  Report Type: Spontaneous
  Country: CA (occurrence: CA)
  Receive Date: 20240411
  Receipt Date: 20240502
  Transmission Date: 20240716
  Serious: Yes (Hospitalization)
  Sender: FDA-Public Use
  Company Number: CA-BAYER-2024A051970

PATIENT
  Age: 37 Year
  Sex: Female

DRUGS (1)
  1. POLYETHYLENE GLYCOL 3350 [Suspect]
     Active Substance: POLYETHYLENE GLYCOL 3350
     Dosage: UNK
     Dates: start: 20231201, end: 20231201

REACTIONS (6)
  - Urticaria [Recovered/Resolved]
  - Pruritus [Recovered/Resolved]
  - Periorbital swelling [Recovered/Resolved]
  - Swelling [Recovered/Resolved]
  - Eczema [Recovered/Resolved]
  - Skin disorder [Recovered/Resolved]

NARRATIVE: CASE EVENT DATE: 20231201
